FAERS Safety Report 5284996-4 (Version None)
Quarter: 2007Q2

REPORT INFORMATION
  Report Type: 
  Country: None (occurrence: None)
  Receive Date: 20070403
  Receipt Date: 20070315
  Transmission Date: 20071010
  Serious: Yes (Hospitalization, Other)
  Sender: FDA-Public Use
  Company Number: US-PFIZER INC-2006091406

PATIENT
  Sex: Male
  Weight: 79.4 kg

DRUGS (6)
  1. BEXTRA [Suspect]
     Indication: PAIN
     Route: 048
  2. BEXTRA [Suspect]
     Indication: ARTHRALGIA
  3. PROTONIX [Concomitant]
     Route: 048
  4. ADVAIR DISKUS 100/50 [Concomitant]
  5. VENTOLIN [Concomitant]
  6. FOLIC ACID [Concomitant]
     Route: 048

REACTIONS (2)
  - ANXIETY [None]
  - STEVENS-JOHNSON SYNDROME [None]
